FAERS Safety Report 14097975 (Version 1)
Quarter: 2017Q4

REPORT INFORMATION
  Report Type: Spontaneous
  Country: US (occurrence: US)
  Receive Date: 20171016
  Receipt Date: 20171016
  Transmission Date: 20180321
  Serious: No
  Sender: FDA-Public Use
  Company Number: US-AMGEN-USASP2017019326

PATIENT
  Age: 49 Year
  Sex: Female

DRUGS (1)
  1. PROLIA [Suspect]
     Active Substance: DENOSUMAB
     Indication: PRODUCT USED FOR UNKNOWN INDICATION
     Dosage: UNK
     Route: 065

REACTIONS (7)
  - Skin exfoliation [Not Recovered/Not Resolved]
  - Anxiety [Unknown]
  - Dry skin [Not Recovered/Not Resolved]
  - Impaired healing [Not Recovered/Not Resolved]
  - Onychophagia [Unknown]
  - Paronychia [Unknown]
  - Dermatillomania [Unknown]
